FAERS Safety Report 9381473 (Version 1)
Quarter: 2013Q3

REPORT INFORMATION
  Report Type: Report from Study
  Country: US (occurrence: US)
  Receive Date: 20130703
  Receipt Date: 20130703
  Transmission Date: 20140515
  Serious: Yes (Other)
  Sender: FDA-Public Use
  Company Number: US-BAYER-2013-078062

PATIENT
  Age: 26 Year
  Sex: Female

DRUGS (2)
  1. BETASERON [Suspect]
     Indication: SECONDARY PROGRESSIVE MULTIPLE SCLEROSIS
     Dosage: 8 MIU, QOD
     Route: 058
     Dates: start: 20120612, end: 20130403
  2. TYSABRI [Concomitant]

REACTIONS (4)
  - Mental disorder [Recovering/Resolving]
  - Suicide attempt [Recovering/Resolving]
  - Atrioventricular block [None]
  - Fatigue [Not Recovered/Not Resolved]
